FAERS Safety Report 8836941 (Version 1)
Quarter: 2012Q4

REPORT INFORMATION
  Report Type: Spontaneous
  Country: US (occurrence: None)
  Receive Date: 20121011
  Receipt Date: 20121011
  Transmission Date: 20130627
  Serious: Yes (Other)
  Sender: FDA-Public Use
  Company Number: None

PATIENT
  Sex: Female
  Weight: 70.5 kg

DRUGS (1)
  1. LEVOTHYROXINE [Suspect]
     Dosage: 25 mcg daily orally
     Route: 048
     Dates: start: 20120926, end: 20121001

REACTIONS (2)
  - Migraine [None]
  - Diarrhoea [None]
